FAERS Safety Report 9033764 (Version 2)
Quarter: 2013Q1

REPORT INFORMATION
  Report Type: Spontaneous
  Country: US (occurrence: US)
  Receive Date: 20130128
  Receipt Date: 20130211
  Transmission Date: 20140127
  Serious: Yes (Hospitalization)
  Sender: FDA-Public Use
  Company Number: US-AMGEN-USASP2012073572

PATIENT
  Age: 64 Year
  Sex: Male

DRUGS (9)
  1. ENBREL [Suspect]
     Indication: PSORIASIS
     Dosage: 50 MG  QWK
     Route: 058
     Dates: start: 20111104, end: 20120805
  2. ALLOPURINOL [Concomitant]
     Indication: GOUT
     Dosage: 300 MG, QD
     Route: 048
     Dates: start: 2003
  3. DOXYCYCLINE [Concomitant]
     Dosage: 50 MG, QD
     Route: 048
     Dates: start: 201208
  4. TRICOR                             /00090101/ [Concomitant]
     Indication: HYPERLIPIDAEMIA
     Dosage: 145 MG, QD
     Route: 048
     Dates: start: 2010
  5. TIMOPTIC [Concomitant]
     Indication: GLAUCOMA
     Dosage: UNK, BID
     Dates: start: 2010
  6. RESTASIS [Concomitant]
     Dosage: 0.05 %, BID
     Dates: start: 2009
  7. SIMVASTATIN [Concomitant]
     Indication: HYPERLIPIDAEMIA
     Dosage: 20 MG, QHS
     Route: 048
     Dates: start: 2005
  8. ALREX                              /00595201/ [Concomitant]
     Indication: CONJUNCTIVITIS ALLERGIC
     Dosage: 0.2 %, QWK
     Dates: start: 2010
  9. AZASITE [Concomitant]
     Indication: CONJUNCTIVITIS
     Dosage: 1 %, UNK PRN
     Dates: start: 201206

REACTIONS (3)
  - Local swelling [Recovered/Resolved]
  - Carpal tunnel syndrome [Recovered/Resolved]
  - Localised infection [Recovered/Resolved]
